FAERS Safety Report 6322643-0 (Version None)
Quarter: 2009Q3

REPORT INFORMATION
  Report Type: 
  Country: None (occurrence: None)
  Receive Date: 20090824
  Receipt Date: 20090217
  Transmission Date: 20100115
  Serious: No
  Sender: FDA-Public Use
  Company Number: US-ABBOTT-09P-163-0557921-00

PATIENT
  Sex: Male

DRUGS (10)
  1. NIASPAN [Suspect]
     Indication: BLOOD CHOLESTEROL INCREASED
     Dosage: AT NIGHT
     Route: 048
     Dates: start: 20090209
  2. NASONEX [Concomitant]
     Indication: DRUG USE FOR UNKNOWN INDICATION
  3. NADOLOL [Concomitant]
     Indication: DRUG USE FOR UNKNOWN INDICATION
  4. UROXATROL [Concomitant]
     Indication: DRUG USE FOR UNKNOWN INDICATION
  5. XYZAL [Concomitant]
     Indication: DRUG USE FOR UNKNOWN INDICATION
  6. NALTREXONE HYDROCHLORIDE [Concomitant]
     Indication: DRUG USE FOR UNKNOWN INDICATION
  7. WELLBUTRIN [Concomitant]
     Indication: DRUG USE FOR UNKNOWN INDICATION
  8. PAXIL [Concomitant]
     Indication: DRUG USE FOR UNKNOWN INDICATION
  9. FISH OIL [Concomitant]
     Indication: DRUG USE FOR UNKNOWN INDICATION
  10. ASPIRIN [Concomitant]
     Indication: DRUG USE FOR UNKNOWN INDICATION

REACTIONS (1)
  - FLUSHING [None]
